FAERS Safety Report 22005063 (Version 2)
Quarter: 2023Q2

REPORT INFORMATION
  Report Type: Report from Study
  Country: US (occurrence: US)
  Receive Date: 20230217
  Receipt Date: 20230412
  Transmission Date: 20230721
  Serious: No
  Sender: FDA-Public Use
  Company Number: US-HORIZON THERAPEUTICS-HZN-2023-001274

PATIENT

DRUGS (1)
  1. DUEXIS [Suspect]
     Active Substance: FAMOTIDINE\IBUPROFEN
     Indication: Rheumatoid arthritis
     Dosage: 1 DOSAGE FORM, BID (TAKE 1 TABLET ORALLY UP TO 2X A DAY, PACKAGING SIZE: 800MG/26.6MG)
     Route: 048
     Dates: start: 20220408

REACTIONS (3)
  - Arthropathy [Unknown]
  - Product dose omission issue [Unknown]
  - Off label use [Unknown]
